FAERS Safety Report 8218170-6 (Version None)
Quarter: 2012Q1

REPORT INFORMATION
  Report Type: 
  Country: None (occurrence: None)
  Receive Date: 20120316
  Receipt Date: 20120316
  Transmission Date: 20120608
  Serious: Yes (Hospitalization)
  Sender: FDA-Public Use
  Company Number: None

PATIENT
  Age: 69 Year
  Sex: Male
  Weight: 57.1 kg

DRUGS (2)
  1. MORPHINE [Suspect]
     Dosage: 30 MG TID PO
     Route: 048
  2. OXYCODONE HCL [Suspect]
     Dosage: 15 MG OTHER PO
     Route: 048
     Dates: end: 20110801

REACTIONS (1)
  - LETHARGY [None]
